FAERS Safety Report 7378176-6 (Version None)
Quarter: 2011Q1

REPORT INFORMATION
  Report Type: 
  Country: None (occurrence: None)
  Receive Date: 20110328
  Receipt Date: 20110316
  Transmission Date: 20110831
  Serious: Yes (Hospitalization)
  Sender: FDA-Public Use
  Company Number: A0751458A

PATIENT
  Age: 44 Year
  Sex: Male
  Weight: 143.2 kg

DRUGS (5)
  1. PRILOSEC [Concomitant]
  2. GLIPIZIDE [Concomitant]
  3. GLUCOTROL XL [Concomitant]
  4. TRICOR [Concomitant]
  5. AVANDIA [Suspect]
     Dosage: 8MG PER DAY
     Route: 048
     Dates: start: 20000328, end: 20060801

REACTIONS (4)
  - ISCHAEMIC CEREBRAL INFARCTION [None]
  - BRAIN OEDEMA [None]
  - HYPERTENSION [None]
  - CAROTID ARTERY STENOSIS [None]
